FAERS Safety Report 6238810-0 (Version None)
Quarter: 2009Q2

REPORT INFORMATION
  Report Type: 
  Country: None (occurrence: None)
  Receive Date: 20090622
  Receipt Date: 20090611
  Transmission Date: 20091009
  Serious: Yes (Hospitalization)
  Sender: FDA-Public Use
  Company Number: JP-ASTRAZENECA-2009SE02966

PATIENT
  Age: 60 Year
  Sex: Male

DRUGS (2)
  1. MEROPEN [Suspect]
     Indication: PNEUMONIA
     Route: 042
     Dates: start: 20090518, end: 20090521
  2. ROCEPHIN [Concomitant]
     Dates: start: 20090513, end: 20090521

REACTIONS (1)
  - INTERSTITIAL LUNG DISEASE [None]
